FAERS Safety Report 15674960 (Version 1)
Quarter: 2018Q4

REPORT INFORMATION
  Report Type: Spontaneous
  Country: SE (occurrence: SE)
  Receive Date: 20181130
  Receipt Date: 20181130
  Transmission Date: 20190205
  Serious: Yes (Other)
  Sender: FDA-Public Use
  Company Number: SE-ACCORD-094484

PATIENT
  Age: 19 Year
  Sex: Female

DRUGS (3)
  1. SERTRALINE [Suspect]
     Active Substance: SERTRALINE HYDROCHLORIDE
     Indication: DEPRESSION
     Dosage: UNCLEAR DOSAGE.
     Route: 048
     Dates: start: 20161214
  2. MELATONIN [Concomitant]
     Active Substance: MELATONIN
  3. THERALEN [Concomitant]
     Active Substance: TRIMEPRAZINE

REACTIONS (1)
  - Laryngospasm [Not Recovered/Not Resolved]

NARRATIVE: CASE EVENT DATE: 20180105
